FAERS Safety Report 5028539-9 (Version None)
Quarter: 2006Q2

REPORT INFORMATION
  Report Type: 
  Country: None (occurrence: None)
  Receive Date: 20060617
  Receipt Date: 20060614
  Transmission Date: 20061013
  Serious: Yes (Hospitalization)
  Sender: FDA-Public Use
  Company Number: JP-BOEHRINGER INGELHEIM PHARMACEUTICALS, INC.-2006-BP-06723NB

PATIENT
  Age: 8 Decade
  Sex: Female

DRUGS (4)
  1. MOBIC [Suspect]
     Indication: MUSCULOSKELETAL PAIN
     Route: 048
     Dates: start: 20050106, end: 20060602
  2. DEPAS [Concomitant]
     Route: 048
  3. TERNELIN [Concomitant]
     Route: 048
  4. BENZALIN [Concomitant]
     Route: 048

REACTIONS (1)
  - PERITONITIS [None]
